FAERS Safety Report 5676947-5 (Version None)
Quarter: 2008Q1

REPORT INFORMATION
  Report Type: 
  Country: None (occurrence: None)
  Receive Date: 20080324
  Receipt Date: 20080319
  Transmission Date: 20080703
  Serious: Yes (Hospitalization)
  Sender: FDA-Public Use
  Company Number: US-BRISTOL-MYERS SQUIBB COMPANY-14120190

PATIENT
  Age: 41 Year
  Sex: Male
  Weight: 110 kg

DRUGS (5)
  1. ERBITUX [Suspect]
     Indication: COLON CANCER STAGE III
     Dosage: START DATE OF FIRST COURSE:12MAR07,DAY 8 NO THERAPY.
     Route: 042
     Dates: start: 20080212, end: 20080212
  2. LEUCOVORIN CALCIUM [Suspect]
     Indication: COLON CANCER STAGE III
     Dosage: START DATE OF FIRST COURSE:12MAR07
     Route: 042
     Dates: start: 20080212, end: 20080212
  3. FLUOROURACIL [Suspect]
     Indication: COLON CANCER STAGE III
     Dosage: PUSH DOSE944MG,CONTINUOUS OVER 46HRS 5,664MG.START DATE OF FIRST COURSE:12MAR07
     Route: 042
     Dates: start: 20080212, end: 20080212
  4. OXALIPLATIN [Suspect]
     Indication: COLON CANCER STAGE III
     Dosage: START DATE OF FIRST COURSE:12MAR07
     Route: 042
     Dates: start: 20080212, end: 20080212
  5. COUMADIN [Concomitant]

REACTIONS (2)
  - ARTHRALGIA [None]
  - PERIPHERAL MOTOR NEUROPATHY [None]
